FAERS Safety Report 8269610-8 (Version None)
Quarter: 2012Q2

REPORT INFORMATION
  Report Type: 
  Country: None (occurrence: None)
  Receive Date: 20120410
  Receipt Date: 20120326
  Transmission Date: 20120825
  Serious: Yes (Other)
  Sender: FDA-Public Use
  Company Number: US-BIOGENIDEC-2010BI006519

PATIENT
  Age: 39 Year
  Sex: Female

DRUGS (7)
  1. VITAMIN B-12 [Concomitant]
     Dates: start: 20100101, end: 20100101
  2. TYSABRI [Suspect]
     Route: 042
     Dates: start: 20090127, end: 20100125
  3. MULTI-VITAMINS [Concomitant]
  4. NUVARING [Concomitant]
     Indication: CONTRACEPTION
  5. TYSABRI [Suspect]
     Route: 042
     Dates: start: 20101122
  6. ADDERALL 5 [Concomitant]
  7. TYSABRI [Suspect]
     Indication: MULTIPLE SCLEROSIS
     Route: 042
     Dates: start: 20080404, end: 20080819

REACTIONS (2)
  - BREECH PRESENTATION [None]
  - PREGNANCY [None]
